FAERS Safety Report 16625999 (Version 1)
Quarter: 2019Q3

REPORT INFORMATION
  Report Type: Spontaneous
  Country: TW (occurrence: TW)
  Receive Date: 20190724
  Receipt Date: 20190724
  Transmission Date: 20191004
  Serious: Yes (Other)
  Sender: FDA-Public Use
  Company Number: TW-CASPER PHARMA LLC-2019CAS000358

PATIENT
  Age: 50 Year
  Sex: Male

DRUGS (4)
  1. DEXAMETHASONE. [Suspect]
     Active Substance: DEXAMETHASONE
     Dosage: 4 MILLIGRAM, TID
     Route: 048
     Dates: start: 20180624, end: 20180702
  2. METHYLPREDNISOLONE. [Suspect]
     Active Substance: METHYLPREDNISOLONE
     Indication: HYPERSENSITIVITY PNEUMONITIS
     Dosage: 40 MILLIGRAM, TID
     Route: 042
     Dates: start: 20180619, end: 20180623
  3. DEXAMETHASONE. [Suspect]
     Active Substance: DEXAMETHASONE
     Indication: HYPERSENSITIVITY PNEUMONITIS
     Dosage: 4 MILLIGRAM, TID
     Route: 048
     Dates: start: 20180602, end: 20180619
  4. NEOMYCIN, POLYMYXIN, BACITRACIN, HC [Suspect]
     Active Substance: BACITRACIN ZINC\HYDROCORTISONE\NEOMYCIN SULFATE\POLYMYXIN B SULFATE
     Indication: HYPERSENSITIVITY PNEUMONITIS
     Dosage: 100 MILLIGRAM, TID
     Route: 042
     Dates: start: 20180528, end: 20180601

REACTIONS (3)
  - Pneumatosis intestinalis [Unknown]
  - Product used for unknown indication [Unknown]
  - Pneumoretroperitoneum [Recovered/Resolved]
